FAERS Safety Report 24880584 (Version 1)
Quarter: 2025Q1

REPORT INFORMATION
  Report Type: Spontaneous
  Country: US (occurrence: US)
  Receive Date: 20250123
  Receipt Date: 20250123
  Transmission Date: 20250409
  Serious: Yes (Hospitalization)
  Sender: PRINSTON PHARMACEUTICAL
  Company Number: US-PRINSTON PHARMACEUTICAL INC.-2025PRN00016

PATIENT
  Age: 35 Week

DRUGS (2)
  1. QUETIAPINE [Suspect]
     Active Substance: QUETIAPINE
  2. CITALOPRAM [Suspect]
     Active Substance: CITALOPRAM

REACTIONS (2)
  - Neurological symptom [Recovered/Resolved]
  - Foetal exposure during pregnancy [Recovered/Resolved]
